FAERS Safety Report 5911739-0 (Version None)
Quarter: 2008Q4

REPORT INFORMATION
  Report Type: 
  Country: None (occurrence: None)
  Receive Date: 20081008
  Receipt Date: 20080929
  Transmission Date: 20090506
  Serious: Yes (Hospitalization)
  Sender: FDA-Public Use
  Company Number: US-JNJFOC-20080504908

PATIENT
  Sex: Female
  Weight: 69.6 kg

DRUGS (5)
  1. REMICADE [Suspect]
     Route: 042
  2. REMICADE [Suspect]
     Indication: COLITIS ULCERATIVE
     Route: 042
  3. STEROIDS [Concomitant]
     Indication: PREMEDICATION
  4. TYLENOL (CAPLET) [Concomitant]
     Indication: PREMEDICATION
  5. BENADRYL [Concomitant]
     Indication: PREMEDICATION

REACTIONS (5)
  - DYSPNOEA [None]
  - INFUSION RELATED REACTION [None]
  - OROPHARYNGEAL PAIN [None]
  - PAIN IN EXTREMITY [None]
  - SERUM SICKNESS [None]
